FAERS Safety Report 10946917 (Version 1)
Quarter: 2015Q1

REPORT INFORMATION
  Report Type: Spontaneous
  Country: US (occurrence: None)
  Receive Date: 20150212
  Receipt Date: 20150212
  Transmission Date: 20150721
  Serious: No
  Sender: FDA-Public Use
  Company Number: TPA2012A00631

PATIENT
  Age: 72 Year
  Sex: Male
  Weight: 131.09 kg

DRUGS (15)
  1. NORVASC (AMLODIPINE) [Concomitant]
  2. PRADAXA [Concomitant]
     Active Substance: DABIGATRAN ETEXILATE MESYLATE
  3. CERAX (HYDROXYZINE HYDROCHLORIDE) [Concomitant]
  4. LISINOPRIL. [Concomitant]
     Active Substance: LISINOPRIL
  5. PRAVASTATIN [Concomitant]
     Active Substance: PRAVASTATIN\PRAVASTATIN SODIUM
  6. LOPRESSOR [Concomitant]
     Active Substance: METOPROLOL TARTRATE
  7. PEPCID [Concomitant]
     Active Substance: FAMOTIDINE
  8. ULORIC [Suspect]
     Active Substance: FEBUXOSTAT
     Indication: GOUT
     Dosage: 1 IN 1 DAY
     Route: 048
     Dates: start: 20120110
  9. SYNTHROID [Concomitant]
     Active Substance: LEVOTHYROXINE SODIUM
  10. LASIX [Concomitant]
     Active Substance: FUROSEMIDE
  11. ZYRTEC [Concomitant]
     Active Substance: CETIRIZINE HYDROCHLORIDE
  12. NASONEX [Concomitant]
     Active Substance: MOMETASONE FUROATE
  13. FISH OIL [Concomitant]
     Active Substance: FISH OIL
  14. CARDURA (DOXAZOSIN) [Concomitant]
  15. RESTASIS (CICLOSPORIN) [Concomitant]

REACTIONS (3)
  - Bone pain [None]
  - Condition aggravated [None]
  - Musculoskeletal pain [None]

NARRATIVE: CASE EVENT DATE: 20120110
